FAERS Safety Report 15483684 (Version 1)
Quarter: 2018Q4

REPORT INFORMATION
  Report Type: Spontaneous
  Country: US (occurrence: US)
  Receive Date: 20181003
  Receipt Date: 20181003
  Transmission Date: 20190205
  Serious: Yes (Hospitalization)
  Sender: FDA-Public Use
  Company Number: None

PATIENT
  Age: 57 Year
  Sex: Male
  Weight: 170 kg

DRUGS (1)
  1. METFORMIN [Suspect]
     Active Substance: METFORMIN HYDROCHLORIDE
     Indication: DIABETES MELLITUS
     Dates: start: 20140825, end: 20180518

REACTIONS (8)
  - Hypotension [None]
  - Hyperhidrosis [None]
  - Confusional state [None]
  - Diarrhoea [None]
  - Acute kidney injury [None]
  - Asthenia [None]
  - Lactic acidosis [None]
  - Pallor [None]

NARRATIVE: CASE EVENT DATE: 20180518
